FAERS Safety Report 15313068 (Version 2)
Quarter: 2018Q3

REPORT INFORMATION
  Report Type: Spontaneous
  Country: US (occurrence: US)
  Receive Date: 20180823
  Receipt Date: 20180831
  Transmission Date: 20181010
  Serious: Yes (Hospitalization, Other)
  Sender: FDA-Public Use
  Company Number: US-GILEAD-2018-0357900

PATIENT
  Age: 27 Year
  Sex: Male
  Weight: 57.1 kg

DRUGS (3)
  1. BIKTARVY [Suspect]
     Active Substance: BICTEGRAVIR SODIUM\EMTRICITABINE\TENOFOVIR ALAFENAMIDE FUMARATE
     Indication: HIV INFECTION
     Dosage: 1 DF, QD
     Route: 048
     Dates: start: 20180730
  2. AUGMENTIN [Suspect]
     Active Substance: AMOXICILLIN\CLAVULANATE POTASSIUM
     Indication: PNEUMONIA
     Dosage: 875 MG, BID
     Route: 048
     Dates: start: 20180807, end: 20180812
  3. BACTRIM DS [Suspect]
     Active Substance: SULFAMETHOXAZOLE\TRIMETHOPRIM
     Indication: ANTIFUNGAL PROPHYLAXIS
     Dosage: 1 DF, QD
     Route: 048
     Dates: start: 20180731

REACTIONS (11)
  - Diarrhoea [Unknown]
  - Mycobacterium avium complex infection [Unknown]
  - Weight decreased [Unknown]
  - Pneumonia [Unknown]
  - Asthenia [Unknown]
  - Cough [Unknown]
  - Mental status changes [Unknown]
  - Hypophagia [Unknown]
  - Acute kidney injury [Unknown]
  - Hypotension [Unknown]
  - Renal tubular necrosis [Unknown]

NARRATIVE: CASE EVENT DATE: 20180812
